FAERS Safety Report 19575681 (Version 1)
Quarter: 2021Q3

REPORT INFORMATION
  Report Type: Spontaneous
  Country: US (occurrence: US)
  Receive Date: 20210717
  Receipt Date: 20210717
  Transmission Date: 20211014
  Serious: Yes (Disabling, Other)
  Sender: FDA-Public Use
  Company Number: None

PATIENT
  Age: 16 Year
  Sex: Female
  Weight: 85.05 kg

DRUGS (1)
  1. MEDROXYPROGESTERONE [Suspect]
     Active Substance: MEDROXYPROGESTERONE
     Indication: CONTRACEPTION

REACTIONS (4)
  - Menstrual disorder [None]
  - Polycystic ovaries [None]
  - Heavy menstrual bleeding [None]
  - Fatigue [None]

NARRATIVE: CASE EVENT DATE: 20170719
